FAERS Safety Report 19532486 (Version 2)
Quarter: 2021Q3

REPORT INFORMATION
  Report Type: Report from Study
  Country: None (occurrence: IT)
  Receive Date: 20210713
  Receipt Date: 20210803
  Transmission Date: 20211014
  Serious: Yes (Hospitalization)
  Sender: FDA-Public Use
  Company Number: IT-ABBVIE-21K-083-3984702-00

PATIENT
  Age: 72 Year
  Sex: Male

DRUGS (2)
  1. DUODOPA [Suspect]
     Active Substance: CARBIDOPA\LEVODOPA
     Indication: PARKINSON^S DISEASE
     Dosage: TOTAL DAILY DOSE (MG): 570; PUMP SETTING: MD: 2,5+0 CR: 1,5, ED: 1
     Route: 050
     Dates: start: 20140505
  2. DUODOPA [Suspect]
     Active Substance: CARBIDOPA\LEVODOPA

REACTIONS (4)
  - Wound [Recovering/Resolving]
  - Cervical vertebral fracture [Recovering/Resolving]
  - Renal haematoma [Recovering/Resolving]
  - Pneumothorax traumatic [Recovering/Resolving]

NARRATIVE: CASE EVENT DATE: 20210706
